FAERS Safety Report 24913513 (Version 1)
Quarter: 2025Q1

REPORT INFORMATION
  Report Type: Spontaneous
  Country: AT (occurrence: AT)
  Receive Date: 20250201
  Receipt Date: 20250201
  Transmission Date: 20250409
  Serious: Yes (Other)
  Sender: JOHNSON AND JOHNSON
  Company Number: AT-JNJFOC-20241251251

PATIENT
  Age: 78 Year
  Sex: Male

DRUGS (1)
  1. TALVEY [Suspect]
     Active Substance: TALQUETAMAB-TGVS
     Indication: Plasma cell myeloma
     Route: 065

REACTIONS (6)
  - Cytopenia [Unknown]
  - Pyrexia [Recovered/Resolved]
  - Serum ferritin increased [Recovering/Resolving]
  - Blood triglycerides increased [Recovering/Resolving]
  - C-reactive protein increased [Recovering/Resolving]
  - General physical health deterioration [Recovering/Resolving]
